FAERS Safety Report 14965465 (Version 4)
Quarter: 2019Q3

REPORT INFORMATION
  Report Type: Spontaneous
  Country: FR (occurrence: FR)
  Receive Date: 20180601
  Receipt Date: 20190918
  Transmission Date: 20191004
  Serious: Yes (Life-Threatening, Hospitalization)
  Sender: FDA-Public Use
  Company Number: FR-ANIPHARMA-2018-FR-000061

PATIENT
  Age: 66 Year
  Sex: Male
  Weight: 138 kg

DRUGS (19)
  1. AMLOR [Concomitant]
     Active Substance: AMLODIPINE BESYLATE
     Dosage: 5MG DAILY
     Route: 048
  2. TALTZ [Suspect]
     Active Substance: IXEKIZUMAB
     Dosage: 160 MG Q2WK / 80 MG Q4WK
     Route: 058
     Dates: start: 20190218
  3. STELARA [Suspect]
     Active Substance: USTEKINUMAB
     Dosage: 1 DF ONCE EVERY 12 WEEKS
     Route: 058
     Dates: start: 20160216, end: 201804
  4. METFORMIN [Concomitant]
     Active Substance: METFORMIN HYDROCHLORIDE
     Dosage: 100MG TID
     Route: 048
  5. AERIUS [Concomitant]
     Dosage: 5MG DAILY
     Route: 048
  6. ATACAND [Concomitant]
     Active Substance: CANDESARTAN CILEXETIL
     Route: 065
  7. CANDESARTAN HCT [Suspect]
     Active Substance: CANDESARTAN CILEXETIL\HYDROCHLOROTHIAZIDE
     Indication: PRODUCT USED FOR UNKNOWN INDICATION
     Dosage: 16MG DAILY
     Route: 048
  8. PARACETAMOL [Concomitant]
     Active Substance: ACETAMINOPHEN
     Dosage: 1G QID
     Route: 048
  9. LAMISIL [Concomitant]
     Active Substance: TERBINAFINE HYDROCHLORIDE
     Route: 065
  10. LASILIX [Suspect]
     Active Substance: FUROSEMIDE
     Dosage: 250MG/25ML 1DF A DAY
     Route: 065
  11. DAIVOBET [Concomitant]
     Active Substance: BETAMETHASONE DIPROPIONATE\CALCIPOTRIENE
     Dosage: 1 DF APPLICATION A DAY
     Route: 065
  12. MOPRAL [Concomitant]
     Active Substance: OMEPRAZOLE
     Dosage: 40MG DAILY
     Route: 048
  13. COUMADINE [Concomitant]
     Active Substance: WARFARIN SODIUM
     Dosage: 4MG DAILY
     Route: 048
  14. INEXIUM [Concomitant]
     Active Substance: ESOMEPRAZOLE
     Route: 065
  15. ETANERCEPT [Suspect]
     Active Substance: ETANERCEPT
     Dosage: 1 DF BIWK
     Route: 058
     Dates: start: 201305, end: 20160216
  16. DUOTRAV [Concomitant]
     Active Substance: TIMOLOL MALEATE\TRAVOPROST
     Dosage: ONE DROP A DAY IN THE RIGHT EYE
  17. INSULIN [Concomitant]
     Active Substance: INSULIN NOS
     Dosage: 1 DF DAILY
     Route: 058
  18. FORLAX [Concomitant]
     Active Substance: POLYETHYLENE GLYCOL 4000
     Route: 065
  19. COSOPT [Concomitant]
     Active Substance: DORZOLAMIDE HYDROCHLORIDE\TIMOLOL MALEATE
     Dosage: ONE DROP A DAY IN THE RIGHT EYE

REACTIONS (9)
  - Blood creatine increased [Recovered/Resolved]
  - Cardiac failure [Recovered/Resolved with Sequelae]
  - Renal impairment [Recovered/Resolved with Sequelae]
  - Gastrointestinal angiodysplasia [Not Recovered/Not Resolved]
  - Hepatocellular carcinoma [Recovered/Resolved]
  - Anaemia [Recovered/Resolved with Sequelae]
  - Diabetes mellitus inadequate control [Recovered/Resolved with Sequelae]
  - Pneumonia [Recovered/Resolved]
  - Iron deficiency anaemia [Recovering/Resolving]

NARRATIVE: CASE EVENT DATE: 20160325
